FAERS Safety Report 13276861 (Version 1)
Quarter: 2017Q1

REPORT INFORMATION
  Report Type: Spontaneous
  Country: US (occurrence: US)
  Receive Date: 20170227
  Receipt Date: 20170227
  Transmission Date: 20170428
  Serious: Yes (Other)
  Sender: FDA-Public Use
  Company Number: None

PATIENT
  Age: 53 Year
  Sex: Female

DRUGS (4)
  1. LEVOTHYROXINE. [Concomitant]
     Active Substance: LEVOTHYROXINE
  2. IBUPROFEN. [Concomitant]
     Active Substance: IBUPROFEN
  3. AMPYRA [Suspect]
     Active Substance: DALFAMPRIDINE
     Indication: MULTIPLE SCLEROSIS
     Route: 048
     Dates: start: 201307
  4. BUPROPION. [Concomitant]
     Active Substance: BUPROPION

REACTIONS (2)
  - Multiple sclerosis [None]
  - Urinary tract disorder [None]

NARRATIVE: CASE EVENT DATE: 20170116
